FAERS Safety Report 4326294-9 (Version None)
Quarter: 2004Q1

REPORT INFORMATION
  Report Type: 
  Country: None (occurrence: None)
  Receive Date: 20040325
  Receipt Date: 20040115
  Transmission Date: 20041129
  Serious: No
  Sender: FDA-Public Use
  Company Number: US063775

PATIENT
  Age: 57 Year
  Sex: Male

DRUGS (3)
  1. NEULASTA [Suspect]
     Indication: CHEMOTHERAPY
     Dosage: 1 IN 2 WEEKS
     Dates: start: 20030920
  2. FLUDARABINE PHOSPHATE [Concomitant]
  3. DEXAMETHASONE [Concomitant]

REACTIONS (1)
  - HAEMOGLOBINAEMIA [None]
